FAERS Safety Report 10250806 (Version 2)
Quarter: 2014Q2

REPORT INFORMATION
  Report Type: Report from Study
  Country: CA (occurrence: CA)
  Receive Date: 20140620
  Receipt Date: 20140620
  Transmission Date: 20141212
  Serious: Yes (Hospitalization)
  Sender: FDA-Public Use
  Company Number: CA-ABBVIE-13P-028-1057328-00

PATIENT
  Sex: Female

DRUGS (1)
  1. HUMIRA [Suspect]
     Indication: RHEUMATOID ARTHRITIS
     Route: 058
     Dates: start: 20110204, end: 201303

REACTIONS (7)
  - Heart rate decreased [Unknown]
  - Pulmonary oedema [Unknown]
  - Cardiac disorder [Unknown]
  - Pneumonia [Unknown]
  - Dyspnoea [Not Recovered/Not Resolved]
  - Fear of death [Unknown]
  - Confusional state [Unknown]
